FAERS Safety Report 6617080-5 (Version None)
Quarter: 2010Q1

REPORT INFORMATION
  Report Type: 
  Country: None (occurrence: None)
  Receive Date: 20100307
  Receipt Date: 20100224
  Transmission Date: 20100710
  Serious: Yes (Death, Life-Threatening)
  Sender: FDA-Public Use
  Company Number: JP-BRISTOL-MYERS SQUIBB COMPANY-14810956

PATIENT
  Age: 75 Year
  Sex: Male

DRUGS (5)
  1. SPRYCEL [Suspect]
     Indication: BLAST CRISIS IN MYELOGENOUS LEUKAEMIA
     Route: 048
     Dates: start: 20090930, end: 20091013
  2. OMEPRAZOLE [Concomitant]
     Dosage: OMEPRAZOLE SODIUM INJ
     Route: 042
     Dates: start: 20091004, end: 20091009
  3. MEROPENEM [Concomitant]
     Dosage: MEROPENEM HYDRATE INJ
     Route: 042
     Dates: start: 20090909, end: 20090920
  4. DORIPENEM [Concomitant]
     Dosage: DORIPENEM HYDRATE INJ
     Route: 042
     Dates: start: 20090921, end: 20090924
  5. PIPERACILLIN [Concomitant]
     Dosage: PIPERACILLIN HYDRATE INJ
     Route: 042
     Dates: start: 20090925, end: 20091006

REACTIONS (3)
  - GASTROINTESTINAL HAEMORRHAGE [None]
  - MALIGNANT NEOPLASM PROGRESSION [None]
  - RENAL FAILURE [None]
